FAERS Safety Report 18499963 (Version 2)
Quarter: 2021Q1

REPORT INFORMATION
  Report Type: Spontaneous
  Country: US (occurrence: US)
  Receive Date: 20201112
  Receipt Date: 20210107
  Transmission Date: 20210419
  Serious: No
  Sender: FDA-Public Use
  Company Number: US-ASTRAZENECA-2020SF43523

PATIENT
  Age: 74 Year
  Sex: Male
  Weight: 65.3 kg

DRUGS (3)
  1. INSULIN INFUSION PUMP [Concomitant]
     Indication: TYPE 1 DIABETES MELLITUS
  2. PROAIR HFA [Concomitant]
     Active Substance: ALBUTEROL SULFATE
     Indication: ASTHMA
     Dosage: AS REQUIRED
  3. SYMBICORT [Suspect]
     Active Substance: BUDESONIDE\FORMOTEROL FUMARATE DIHYDRATE
     Indication: ASTHMA
     Dosage: 160/4.5 MCG, 2 PUFFS IN MORNING AND 2 IN THE EVENING, TWO TIMES A DAY
     Route: 055
     Dates: start: 2016

REACTIONS (5)
  - Incorrect dose administered by device [Unknown]
  - Device delivery system issue [Recovered/Resolved]
  - Intentional device misuse [Unknown]
  - Chest pain [Recovered/Resolved]
  - Product use issue [Unknown]

NARRATIVE: CASE EVENT DATE: 2020
